FAERS Safety Report 8547202-0 (Version None)
Quarter: 2012Q3

REPORT INFORMATION
  Report Type: 
  Country: None (occurrence: None)
  Receive Date: 20120727
  Receipt Date: 20120224
  Transmission Date: 20120928
  Serious: No
  Sender: FDA-Public Use
  Company Number: US-ASTRAZENECA-2012SE13487

PATIENT
  Sex: Female

DRUGS (2)
  1. SEROQUEL [Concomitant]
     Route: 048
  2. SEROQUEL XR [Suspect]
     Indication: BIPOLAR DISORDER
     Dosage: 200 MG - THREE TABLETS AT BEDTIME; 100 MG IN THE MORNING; 100 MG AT NOON
     Route: 048

REACTIONS (2)
  - WEIGHT INCREASED [None]
  - WRONG TECHNIQUE IN DRUG USAGE PROCESS [None]
